FAERS Safety Report 5368567-7 (Version None)
Quarter: 2007Q2

REPORT INFORMATION
  Report Type: 
  Country: None (occurrence: None)
  Receive Date: 20070625
  Receipt Date: 20070614
  Transmission Date: 20071010
  Serious: Yes (Hospitalization)
  Sender: FDA-Public Use
  Company Number: JP-AVENTIS-200713028EU

PATIENT
  Age: 72 Year
  Sex: Female

DRUGS (5)
  1. FUROSEMIDE [Suspect]
  2. SPIRONOLACTONE [Suspect]
  3. DIGOXIN [Suspect]
  4. LOSARTAN [Concomitant]
  5. CARVEDILOL [Concomitant]

REACTIONS (5)
  - BLOOD CREATININE INCREASED [None]
  - CARDIOACTIVE DRUG LEVEL INCREASED [None]
  - DEHYDRATION [None]
  - HYPERKALAEMIA [None]
  - PHOTOPSIA [None]
